FAERS Safety Report 20707963 (Version 1)
Quarter: 2022Q2

REPORT INFORMATION
  Report Type: Report from Study
  Country: US (occurrence: US)
  Receive Date: 20220414
  Receipt Date: 20220414
  Transmission Date: 20220721
  Serious: Yes (Death, Other)
  Sender: FDA-Public Use
  Company Number: US-VALIDUS PHARMACEUTICALS LLC-US-VDP-2022-015327

PATIENT

DRUGS (2)
  1. BUMETANIDE [Suspect]
     Active Substance: BUMETANIDE
     Indication: Neonatal seizure
     Dosage: 3 MILLIGRAM/KILOGRAM
     Route: 065
  2. PHENOBARBITAL [Suspect]
     Active Substance: PHENOBARBITAL
     Indication: Neonatal seizure
     Dosage: UNK
     Route: 065

REACTIONS (4)
  - Death [Fatal]
  - Polyuria [Unknown]
  - Hypoacusis [Unknown]
  - Product use in unapproved indication [Unknown]
